FAERS Safety Report 10062775 (Version 1)
Quarter: 2014Q2

REPORT INFORMATION
  Report Type: Spontaneous
  Country: US (occurrence: US)
  Receive Date: 20140407
  Receipt Date: 20140407
  Transmission Date: 20141212
  Serious: No
  Sender: FDA-Public Use
  Company Number: US-TEVA-473514USA

PATIENT
  Age: 83 Year
  Sex: Female
  Weight: 79.45 kg

DRUGS (3)
  1. PROAIR HFA [Suspect]
     Indication: CHRONIC OBSTRUCTIVE PULMONARY DISEASE
     Route: 055
     Dates: start: 201310
  2. QUINAPRIL [Concomitant]
  3. LANSOPRAZOLE [Concomitant]

REACTIONS (2)
  - Sensation of foreign body [Recovered/Resolved]
  - Cough [Recovered/Resolved]
